FAERS Safety Report 16110933 (Version 1)
Quarter: 2019Q2

REPORT INFORMATION
  Report Type: Spontaneous
  Country: US (occurrence: US)
  Receive Date: 20190322
  Receipt Date: 20190322
  Transmission Date: 20190711
  Serious: Yes (Hospitalization, Disabling, Other)
  Sender: FDA-Public Use
  Company Number: None

PATIENT
  Age: 50 Year
  Sex: Female
  Weight: 84.15 kg

DRUGS (10)
  1. MULTIHANCE [Suspect]
     Active Substance: GADOBENATE DIMEGLUMINE
     Indication: SCAN WITH CONTRAST
     Route: 042
     Dates: start: 20140310, end: 20180601
  2. TIROSINT [Concomitant]
     Active Substance: LEVOTHYROXINE SODIUM
  3. LOPRESSOR [Concomitant]
     Active Substance: METOPROLOL TARTRATE
  4. DAILY MULTIVITAMIN [Concomitant]
     Active Substance: VITAMINS
  5. AMLODAPINE [Concomitant]
  6. WELLBUTRIN [Concomitant]
     Active Substance: BUPROPION HYDROCHLORIDE
  7. VITAMIN D3 [Concomitant]
     Active Substance: CHOLECALCIFEROL
  8. PROTONIX [Concomitant]
     Active Substance: PANTOPRAZOLE SODIUM
  9. METFORMIN [Concomitant]
     Active Substance: METFORMIN HYDROCHLORIDE
  10. PLAQUANIL [Concomitant]

REACTIONS (3)
  - Contrast media toxicity [None]
  - Central nervous system lesion [None]
  - Post procedural infection [None]

NARRATIVE: CASE EVENT DATE: 20170915
